FAERS Safety Report 6904114-3 (Version None)
Quarter: 2010Q3

REPORT INFORMATION
  Report Type: 
  Country: None (occurrence: None)
  Receive Date: 20100804
  Receipt Date: 20090319
  Transmission Date: 20110219
  Serious: No
  Sender: FDA-Public Use
  Company Number: US-PFIZER INC-2008153307

PATIENT
  Sex: Female

DRUGS (9)
  1. LYRICA [Suspect]
     Indication: FIBROMYALGIA
     Dosage: UNK
     Dates: start: 20070101
  2. SYNTHROID [Concomitant]
     Dosage: UNK
  3. CYTOMEL [Concomitant]
     Dosage: UNK
  4. LEXAPRO [Concomitant]
     Dosage: UNK
  5. VALIUM [Concomitant]
     Dosage: UNK
  6. ADVAIR DISKUS 100/50 [Concomitant]
     Dosage: UNK
  7. ENTAZYME FORTE [Concomitant]
     Dosage: UNK
  8. HORMONS [Concomitant]
     Dosage: UNK
     Route: 061
  9. VITAMIN TAB [Concomitant]
     Dosage: UNK

REACTIONS (3)
  - PAIN [None]
  - SOMNOLENCE [None]
  - THIRST [None]
